FAERS Safety Report 7946474-0 (Version None)
Quarter: 2011Q4

REPORT INFORMATION
  Report Type: 
  Country: None (occurrence: None)
  Receive Date: 20111129
  Receipt Date: 20111123
  Transmission Date: 20120403
  Serious: No
  Sender: FDA-Public Use
  Company Number: US-BAYER-2011-005755

PATIENT
  Age: 45 Year
  Sex: Female
  Weight: 91.61 kg

DRUGS (14)
  1. TOPROL-XL [Concomitant]
     Dosage: 200 MG, QD
     Route: 048
  2. PREVACID [Concomitant]
     Route: 048
  3. PROTAMINE SULFATE [Concomitant]
     Dosage: 500MG AT 12:3 AND 100MG AT 17:26
     Route: 042
  4. GLYNASE [Concomitant]
     Dosage: 3 MG, QD
     Route: 048
  5. HUMULIN R [Concomitant]
     Route: 048
  6. HEPARIN [Concomitant]
     Dosage: 36,000
  7. NORVASC [Concomitant]
     Dosage: 10 MG, QD
     Route: 048
  8. LASIX [Concomitant]
     Dosage: TITRATED DURING CASE
     Route: 042
  9. TRASYLOL [Suspect]
     Dosage: UNK
     Dates: start: 19970101
  10. TRASYLOL [Suspect]
     Indication: CORONARY ARTERY BYPASS
     Dosage: UNK
     Route: 042
     Dates: start: 19980824, end: 19980824
  11. TRASYLOL [Suspect]
     Dosage: UNK
     Dates: start: 20061225
  12. IMDUR [Concomitant]
     Route: 048
  13. VERAPAMIL [Concomitant]
     Dosage: 600 MG, QD
     Route: 048
  14. HESPAN IN EXCEL PLASTIC CONTAINER [Concomitant]

REACTIONS (8)
  - STRESS [None]
  - EMOTIONAL DISTRESS [None]
  - ANXIETY [None]
  - FEAR [None]
  - PAIN [None]
  - ANHEDONIA [None]
  - INJURY [None]
  - UNEVALUABLE EVENT [None]
